FAERS Safety Report 8024990-3 (Version None)
Quarter: 2012Q1

REPORT INFORMATION
  Report Type: 
  Country: None (occurrence: None)
  Receive Date: 20120105
  Receipt Date: 20120103
  Transmission Date: 20120608
  Serious: Yes (Other)
  Sender: FDA-Public Use
  Company Number: FI-ROCHE-1023455

PATIENT
  Sex: Female

DRUGS (5)
  1. IBUPROFEN [Concomitant]
     Indication: RHEUMATOID ARTHRITIS
  2. SULFASALAZINE [Concomitant]
     Indication: RHEUMATOID ARTHRITIS
     Route: 048
  3. TREXAN (FINLAND) [Concomitant]
     Indication: RHEUMATOID ARTHRITIS
     Route: 065
  4. MABTHERA [Suspect]
     Indication: RHEUMATOID ARTHRITIS
     Dosage: SEROPOSITIVE CCP+
     Route: 042
     Dates: start: 20101216
  5. PREDNISONE TAB [Concomitant]
     Indication: RHEUMATOID ARTHRITIS

REACTIONS (5)
  - INFECTION [None]
  - GINGIVAL PAIN [None]
  - PYREXIA [None]
  - NEUTROPENIA [None]
  - TOOTHACHE [None]
